FAERS Safety Report 13883765 (Version 2)
Quarter: 2017Q3

REPORT INFORMATION
  Report Type: Spontaneous
  Country: US (occurrence: US)
  Receive Date: 20170819
  Receipt Date: 20170922
  Transmission Date: 20171127
  Serious: No
  Sender: FDA-Public Use
  Company Number: PHEH2017US026165

PATIENT
  Sex: Female
  Weight: 51.7 kg

DRUGS (2)
  1. LISINOPRIL. [Concomitant]
     Active Substance: LISINOPRIL
     Indication: HYPERTENSION
     Dosage: 1 DF, QD
     Route: 065
  2. BIMATOPROST. [Suspect]
     Active Substance: BIMATOPROST
     Indication: EYELID DISORDER
     Dosage: 2 GTT, QD
     Route: 065
     Dates: start: 20170705

REACTIONS (1)
  - Drug ineffective [Not Recovered/Not Resolved]
